FAERS Safety Report 23171678 (Version 2)
Quarter: 2023Q4

REPORT INFORMATION
  Report Type: Spontaneous
  Country: PT (occurrence: PT)
  Receive Date: 20231110
  Receipt Date: 20231123
  Transmission Date: 20240110
  Serious: Yes (Other)
  Sender: FDA-Public Use
  Company Number: PT-SAMSUNG BIOEPIS-SB-2023-18256

PATIENT
  Age: 16 Year
  Sex: Female

DRUGS (2)
  1. ETANERCEPT [Suspect]
     Active Substance: ETANERCEPT
     Indication: Adenosine deaminase 2 deficiency
     Dosage: UNKNOWN
     Route: 065
  2. INFLIXIMAB [Suspect]
     Active Substance: INFLIXIMAB
     Indication: Adenosine deaminase 2 deficiency
     Dosage: UNKNOWN
     Route: 065

REACTIONS (5)
  - Cutaneous vasculitis [Recovered/Resolved]
  - Myopericarditis [Recovered/Resolved]
  - Off label use [Unknown]
  - Therapeutic product effect incomplete [Unknown]
  - Lymphoedema [Recovered/Resolved]
